FAERS Safety Report 9295570 (Version 1)
Quarter: 2013Q1

REPORT INFORMATION
  Report Type: Spontaneous
  Country: US (occurrence: None)
  Receive Date: 20121227
  Receipt Date: 20121227
  Transmission Date: 20140127
  Serious: Yes (Other)
  Sender: FDA-Public Use
  Company Number: PHEH2012US006633

PATIENT
  Age: 79 Year
  Sex: Male
  Weight: 96 kg

DRUGS (6)
  1. EXJADE (*CGP 72670*) DISPERSIBLE TABLET, 500MG [Suspect]
     Indication: IRON OVERLOAD
     Route: 048
     Dates: start: 20110609
  2. SINGULAIR [Concomitant]
  3. TERAZOSIN (TERAZOSIN) [Concomitant]
  4. SIMVASTATIN (SIMVASTATIN) [Concomitant]
  5. OMEPRAZOLE (OMEPRAZOLE) [Concomitant]
  6. AGGRENOX (ACETYLSALICYCLIC ACID, DIPYRIDAMOLE) [Concomitant]

REACTIONS (2)
  - Renal failure [None]
  - Glomerular filtration rate decreased [None]
